FAERS Safety Report 25084716 (Version 1)
Quarter: 2025Q1

REPORT INFORMATION
  Report Type: Spontaneous
  Country: FR (occurrence: FR)
  Receive Date: 20250317
  Receipt Date: 20250317
  Transmission Date: 20250409
  Serious: Yes (Other)
  Sender: PFIZER
  Company Number: FR-PFIZER INC-2011SE41700

PATIENT
  Age: 79 Year
  Sex: Male
  Weight: 60 kg

DRUGS (7)
  1. MEROPENEM [Suspect]
     Active Substance: MEROPENEM
     Dosage: 2 G, 3X/DAY
     Route: 042
     Dates: start: 20110322, end: 20110404
  2. MEROPENEM [Suspect]
     Active Substance: MEROPENEM
     Route: 042
     Dates: start: 20110513
  3. TYGACIL [Suspect]
     Active Substance: TIGECYCLINE
     Dosage: 100 MG AS LOADING DOSE AND THEN 50 MG, 2X/DAY
     Route: 042
     Dates: start: 20110404
  4. TYGACIL [Suspect]
     Active Substance: TIGECYCLINE
     Dosage: 50 MG, 2X/DAY
     Route: 042
     Dates: start: 20110514
  5. AMIKACIN [Suspect]
     Active Substance: AMIKACIN
     Dosage: 900 MG, 1X/DAY
     Route: 042
     Dates: start: 20110321, end: 20110327
  6. AMIKACIN [Suspect]
     Active Substance: AMIKACIN
     Dosage: 700 MG, 1X/DAY
     Route: 042
     Dates: start: 20110329, end: 20110404
  7. RAMIPRIL [Concomitant]
     Active Substance: RAMIPRIL
     Indication: Blood pressure abnormal

REACTIONS (4)
  - Renal tubular disorder [Recovering/Resolving]
  - Hypophosphataemia [Recovering/Resolving]
  - Hypocalcaemia [Recovering/Resolving]
  - Hypomagnesaemia [Recovered/Resolved]

NARRATIVE: CASE EVENT DATE: 20110401
